FAERS Safety Report 26195078 (Version 1)
Quarter: 2025Q4

REPORT INFORMATION
  Report Type: Other
  Country: US (occurrence: US)
  Receive Date: 20251224
  Receipt Date: 20251224
  Transmission Date: 20260117
  Serious: Yes (Other)
  Sender: NEUROCRINE BIOSCIENCES
  Company Number: US-NEUROCRINE BIOSCIENCES INC.-2025NBI16500

PATIENT
  Age: 28 Year
  Sex: Female

DRUGS (1)
  1. INGREZZA [Suspect]
     Active Substance: VALBENAZINE DITOSYLATE
     Indication: Tardive dyskinesia
     Dosage: 40 MILLIGRAM, QD
     Route: 061

REACTIONS (4)
  - Throat tightness [Recovered/Resolved]
  - Urticaria [Recovered/Resolved]
  - Muscle tightness [Recovered/Resolved]
  - Restlessness [Recovered/Resolved]
